FAERS Safety Report 8101038-3 (Version None)
Quarter: 2012Q1

REPORT INFORMATION
  Report Type: 
  Country: None (occurrence: None)
  Receive Date: 20120129
  Receipt Date: 20110907
  Transmission Date: 20120608
  Serious: No
  Sender: FDA-Public Use
  Company Number: US-ABBOTT-11P-163-0852912-00

PATIENT
  Sex: Female

DRUGS (19)
  1. HUMIRA [Suspect]
     Indication: CROHN'S DISEASE
     Dosage: 160MG LOADING DOSE DAY 1
     Dates: start: 20110901, end: 20110901
  2. HUMIRA [Suspect]
  3. GABAPENTIN [Concomitant]
     Indication: BIPOLAR DISORDER
     Route: 048
  4. ABILIFY [Concomitant]
     Indication: BIPOLAR DISORDER
     Route: 048
  5. BENTYL [Concomitant]
     Indication: PRODUCT USED FOR UNKNOWN INDICATION
     Route: 048
  6. ONDANSETRON HCL [Concomitant]
     Indication: NAUSEA
     Dosage: AS NEEDED
  7. BUSPAR [Concomitant]
     Indication: ANXIETY
  8. METHOTREXATE [Concomitant]
     Indication: PRODUCT USED FOR UNKNOWN INDICATION
     Dosage: 2.5MG, 8 TABS, 1 DAY A WEEK
  9. PREDNISONE TAB [Concomitant]
     Indication: INFLAMMATION
     Route: 048
  10. PREVACID [Concomitant]
     Indication: CROHN'S DISEASE
     Route: 048
  11. ESTRADIOL [Concomitant]
     Indication: HORMONE REPLACEMENT THERAPY
     Route: 048
  12. LEVOTHYROXINE SODIUM [Concomitant]
     Indication: HYPOTHYROIDISM
     Route: 048
  13. PHENERGAN [Concomitant]
     Indication: NAUSEA
  14. GABAPENTIN [Concomitant]
     Indication: MIGRAINE
  15. EFFEXOR XR [Concomitant]
     Indication: BIPOLAR DISORDER
     Route: 048
  16. INVEGA [Concomitant]
     Indication: BIPOLAR DISORDER
     Route: 048
  17. FOLIC ACID [Concomitant]
     Indication: VITAMIN SUPPLEMENTATION
     Route: 048
  18. HYDROCHLOROTHIAZIDE [Concomitant]
     Indication: HYPERTENSION
  19. CLOTRIMAZOLE [Concomitant]
     Indication: CANDIDIASIS

REACTIONS (1)
  - NAUSEA [None]
